FAERS Safety Report 6859626-8 (Version None)
Quarter: 2010Q3

REPORT INFORMATION
  Report Type: 
  Country: None (occurrence: None)
  Receive Date: 20100719
  Receipt Date: 20090226
  Transmission Date: 20110219
  Serious: No
  Sender: FDA-Public Use
  Company Number: US-PFIZER INC-2008016838

PATIENT
  Sex: Female
  Weight: 83.9 kg

DRUGS (3)
  1. CHANTIX [Suspect]
     Indication: SMOKING CESSATION THERAPY
     Route: 048
     Dates: start: 20080101
  2. LISINOPRIL [Concomitant]
  3. HYDROCHLOROTHIAZIDE [Concomitant]

REACTIONS (1)
  - ALOPECIA [None]
